FAERS Safety Report 23229597 (Version 1)
Quarter: 2023Q4

REPORT INFORMATION
  Report Type: Other
  Country: CN (occurrence: None)
  Receive Date: 20231127
  Receipt Date: 20231127
  Transmission Date: 20240109
  Serious: Yes (Death, Hospitalization, Other)
  Sender: FDA-Public Use
  Company Number: CN-Saptalis Pharmaceuticals,LLC-000229

PATIENT
  Sex: Male

DRUGS (6)
  1. ERYTHROMYCIN [Suspect]
     Active Substance: ERYTHROMYCIN
     Indication: Product used for unknown indication
     Route: 038
  2. IMMUNOGLOBULIN [Concomitant]
     Indication: Product used for unknown indication
     Dosage: IMMUNOGLOBULIN WITH A TOTAL DOSE OF 8MG
     Route: 042
  3. DEXAMETHASONE [Concomitant]
     Active Substance: DEXAMETHASONE
     Indication: Product used for unknown indication
     Dosage: 0.03 MG/KG/D
     Route: 048
  4. DEXAMETHASONE [Concomitant]
     Active Substance: DEXAMETHASONE
     Indication: Product used for unknown indication
     Dosage: 0.075 MG/KG/D
     Route: 048
  5. DEXAMETHASONE [Concomitant]
     Active Substance: DEXAMETHASONE
     Indication: Product used for unknown indication
     Dosage: 0.15 MG/KG/D
     Route: 048
  6. DEXAMETHASONE [Concomitant]
     Active Substance: DEXAMETHASONE
     Indication: Product used for unknown indication
     Dosage: 0.3MG/KG/D
     Route: 042

REACTIONS (3)
  - Respiratory distress [Fatal]
  - Disease progression [Fatal]
  - Drug ineffective [Fatal]
